FAERS Safety Report 4317650-3 (Version None)
Quarter: 2004Q1

REPORT INFORMATION
  Report Type: 
  Country: None (occurrence: None)
  Receive Date: 20040315
  Receipt Date: 20040303
  Transmission Date: 20041129
  Serious: Yes (Other)
  Sender: FDA-Public Use
  Company Number: GB-GLAXOSMITHKLINE-B0325523A

PATIENT
  Age: 36 Year
  Sex: Female
  Weight: 68.1 kg

DRUGS (1)
  1. ZYBAN [Suspect]
     Dosage: 150MG TWICE PER DAY
     Route: 048
     Dates: start: 20040202, end: 20040223

REACTIONS (2)
  - PRURITUS GENERALISED [None]
  - TONGUE ULCERATION [None]
